FAERS Safety Report 7783139-2 (Version None)
Quarter: 2011Q3

REPORT INFORMATION
  Report Type: 
  Country: None (occurrence: None)
  Receive Date: 20110928
  Receipt Date: 20110915
  Transmission Date: 20111222
  Serious: Yes (Hospitalization, Other)
  Sender: FDA-Public Use
  Company Number: PHHY2011BR73559

PATIENT
  Sex: Female

DRUGS (8)
  1. CYMBALTA [Concomitant]
  2. ANTIBIOTICS [Concomitant]
  3. CRESTOR [Concomitant]
     Indication: CAROTID ARTERY STENOSIS
     Dosage: 10 MG, QD
  4. LEXAPRO [Concomitant]
     Indication: ANTIDEPRESSANT THERAPY
     Dosage: 10 MG, QD
     Route: 048
  5. CLONAZEPAM [Concomitant]
     Indication: SLEEP DISORDER
     Dosage: 0.5 MG, QD
     Route: 048
     Dates: start: 20110901
  6. DIOVAN [Suspect]
     Indication: HYPERTENSION
     Dosage: 320 MG, A DAY
     Dates: start: 20100101
  7. RASILEZ HCT [Suspect]
     Indication: HYPERTENSION
     Dosage: 1 DF, (300/UNK)
  8. METICORTEN [Concomitant]
     Indication: ADRENAL DISORDER
     Dosage: 5 MG, QD

REACTIONS (7)
  - RESPIRATORY ACIDOSIS [None]
  - PNEUMONIA [None]
  - BLOOD SODIUM DECREASED [None]
  - DEPRESSED LEVEL OF CONSCIOUSNESS [None]
  - ELECTROLYTE IMBALANCE [None]
  - METABOLIC ACIDOSIS [None]
  - BLOOD POTASSIUM DECREASED [None]
